FAERS Safety Report 10356866 (Version 3)
Quarter: 2014Q4

REPORT INFORMATION
  Report Type: Report from Study
  Country: AR (occurrence: AR)
  Receive Date: 20140801
  Receipt Date: 20141218
  Transmission Date: 20150528
  Serious: Yes (Death, Other)
  Sender: FDA-Public Use
  Company Number: PHHY2014AR093876

PATIENT
  Sex: Male

DRUGS (2)
  1. DIOVAN [Suspect]
     Active Substance: VALSARTAN
     Dosage: 1 DF (320, UNITS NOT REPORTED), UNK
     Route: 048
  2. DIOVAN [Suspect]
     Active Substance: VALSARTAN
     Indication: HYPERTENSION
     Dosage: 1 DF (160, UNITS NOT REPORTED), QD
     Route: 048

REACTIONS (3)
  - Pneumonia [Recovering/Resolving]
  - Chronic obstructive pulmonary disease [Unknown]
  - Lung disorder [Fatal]
